FAERS Safety Report 10426095 (Version 3)
Quarter: 2014Q4

REPORT INFORMATION
  Report Type: Spontaneous
  Country: AR (occurrence: AR)
  Receive Date: 20140903
  Receipt Date: 20141223
  Transmission Date: 20150528
  Serious: Yes (Other)
  Sender: FDA-Public Use
  Company Number: AR-AMGEN-ARGSP2014066052

PATIENT
  Age: 58 Year
  Sex: Female

DRUGS (1)
  1. ENBREL [Suspect]
     Active Substance: ETANERCEPT
     Indication: RHEUMATOID ARTHRITIS
     Dosage: 50 MG, WEEKLY
     Route: 065
     Dates: start: 20130315

REACTIONS (5)
  - Eyelid ptosis [Not Recovered/Not Resolved]
  - Erysipelas [Recovered/Resolved]
  - Ocular neoplasm [Not Recovered/Not Resolved]
  - Herpes zoster [Recovered/Resolved]
  - Neoplasm of orbit [Not Recovered/Not Resolved]

NARRATIVE: CASE EVENT DATE: 201404
